FAERS Safety Report 10067538 (Version 1)
Quarter: 2014Q2

REPORT INFORMATION
  Report Type: Spontaneous
  Country: US (occurrence: US)
  Receive Date: 20140409
  Receipt Date: 20140409
  Transmission Date: 20141212
  Serious: Yes (Other)
  Sender: FDA-Public Use
  Company Number: US-JNJFOC-20140319017

PATIENT
  Sex: Female
  Weight: 70.31 kg

DRUGS (7)
  1. HALDOL DECANOATE [Suspect]
     Indication: SCHIZOAFFECTIVE DISORDER BIPOLAR TYPE
     Route: 030
  2. HALDOL DECANOATE [Suspect]
     Indication: SCHIZOAFFECTIVE DISORDER BIPOLAR TYPE
     Route: 030
  3. INVEGA [Suspect]
     Indication: SCHIZOAFFECTIVE DISORDER BIPOLAR TYPE
     Route: 048
     Dates: start: 2009
  4. COGENTIN [Concomitant]
     Route: 048
     Dates: start: 1997
  5. BISOPROLOL FUMARATE AND HYDROCHLOROTHIAZIDE [Concomitant]
     Indication: BLOOD PRESSURE
     Dosage: 5/6.25
     Route: 048
     Dates: start: 1994
  6. KLONOPIN [Concomitant]
     Indication: ANXIETY
     Route: 048
     Dates: start: 1997
  7. CELEXA [Concomitant]
     Route: 048

REACTIONS (5)
  - Adverse event [Unknown]
  - Memory impairment [Not Recovered/Not Resolved]
  - Nuclear magnetic resonance imaging brain abnormal [Not Recovered/Not Resolved]
  - Ulcer [Unknown]
  - Drug effect decreased [Recovered/Resolved]
